FAERS Safety Report 22163458 (Version 1)
Quarter: 2023Q2

REPORT INFORMATION
  Report Type: Spontaneous
  Country: SE (occurrence: SE)
  Receive Date: 20230401
  Receipt Date: 20230401
  Transmission Date: 20230721
  Serious: Yes (Other)
  Sender: FDA-Public Use
  Company Number: None

PATIENT
  Age: 29 Year
  Sex: Male
  Weight: 55 kg

DRUGS (5)
  1. ESCITALOPRAM [Suspect]
     Active Substance: ESCITALOPRAM OXALATE
     Indication: Depression
     Dosage: 5 MG, 1 TABLET IN THE MORNING
     Dates: start: 20221201
  2. CARBAMAZEPINE [Concomitant]
     Active Substance: CARBAMAZEPINE
     Dosage: 150 MG 2 TABLETS AT 08 AND 2 TABLETS AT 20
  3. CALCIUM\CHOLECALCIFEROL [Concomitant]
     Active Substance: CALCIUM\CHOLECALCIFEROL
     Dosage: 500 MG/800 IU, 1 TABLET AT 08
  4. MIRTAZAPINE [Concomitant]
     Active Substance: MIRTAZAPINE
     Dosage: 30MG, 1 TABLET IN THE EVENING
  5. Absenor [Concomitant]
     Dosage: 300MG, 2 TABLETS IN THE MORNING AND 2 TABLETS IN THE EVENING

REACTIONS (1)
  - Epileptic aura [Recovered/Resolved]

NARRATIVE: CASE EVENT DATE: 20221202
